FAERS Safety Report 5720896-0 (Version None)
Quarter: 2008Q2

REPORT INFORMATION
  Report Type: 
  Country: None (occurrence: None)
  Receive Date: 20080424
  Receipt Date: 20080408
  Transmission Date: 20081010
  Serious: Yes (Hospitalization, Other)
  Sender: FDA-Public Use
  Company Number: SPV1-2008-00794

PATIENT
  Age: 56 Year
  Sex: Female
  Weight: 86.2 kg

DRUGS (16)
  1. ADDERALL XR 30 [Suspect]
     Indication: DEPRESSION
     Dosage: 10 MG, 1X/DAY:QD, ORAL; 90 MG, 1X/DAY:QD, ORAL; TWO 30MG CAPSULES, 1X/DAY:QD, ORAL
     Route: 048
     Dates: end: 20060101
  2. ADDERALL XR 30 [Suspect]
     Indication: DEPRESSION
     Dosage: 10 MG, 1X/DAY:QD, ORAL; 90 MG, 1X/DAY:QD, ORAL; TWO 30MG CAPSULES, 1X/DAY:QD, ORAL
     Route: 048
     Dates: start: 20010101
  3. ADDERALL XR 30 [Suspect]
     Indication: DEPRESSION
     Dosage: 10 MG, 1X/DAY:QD, ORAL; 90 MG, 1X/DAY:QD, ORAL; TWO 30MG CAPSULES, 1X/DAY:QD, ORAL
     Route: 048
     Dates: start: 20060101
  4. ADVAIR DISKUS 100/50 [Concomitant]
  5. BENICAR HCT (HYDROCHLOROTHIAZIDE, OLMESARTAN MEDOXOMIL) [Concomitant]
  6. CADUET (AMLODIPINE BESILATE, ATORVASTATIN CALCIUM) [Concomitant]
  7. EFFEXOR XR [Concomitant]
  8. ESTRADIOL [Concomitant]
  9. LEVOXYL [Concomitant]
  10. MELOXICAM [Concomitant]
  11. OXYCONTIN [Concomitant]
  12. STEROID INJECTION [Concomitant]
  13. SENNA-S /00936101/ (DOCUSATE SODIUM, SENNOSIDE A+B) [Concomitant]
  14. SERTRALINE [Concomitant]
  15. TOPROL-XL [Concomitant]
  16. AMBIEN [Concomitant]

REACTIONS (16)
  - ANXIETY [None]
  - ATRIOVENTRICULAR BLOCK [None]
  - CATHETERISATION CARDIAC ABNORMAL [None]
  - CEREBROVASCULAR ACCIDENT [None]
  - CONDITION AGGRAVATED [None]
  - CORONARY ARTERY STENOSIS [None]
  - LUNG NEOPLASM [None]
  - MEMORY IMPAIRMENT [None]
  - OFF LABEL USE [None]
  - OSTEOPOROSIS [None]
  - OVERDOSE [None]
  - RENAL CELL CARCINOMA [None]
  - RENAL IMPAIRMENT [None]
  - SCAR [None]
  - SKIN IRRITATION [None]
  - THROAT IRRITATION [None]
